FAERS Safety Report 16462779 (Version 1)
Quarter: 2019Q2

REPORT INFORMATION
  Report Type: Other
  Country: CA (occurrence: CA)
  Receive Date: 20190621
  Receipt Date: 20190621
  Transmission Date: 20190711
  Serious: Yes (Hospitalization, Other)
  Sender: FDA-Public Use
  Company Number: CA-APOTEX-2019AP016680

PATIENT
  Age: 65 Year
  Sex: Female

DRUGS (4)
  1. ACETYLSALICYLIC ACID [Suspect]
     Active Substance: ASPIRIN
     Indication: ANTIPLATELET THERAPY
     Dosage: UNK
     Route: 065
  2. CLOPIDOGREL [Suspect]
     Active Substance: CLOPIDOGREL BISULFATE
     Indication: ANTIPLATELET THERAPY
     Dosage: 300 MG, UNK
     Route: 065
  3. HEPARIN [Suspect]
     Active Substance: HEPARIN SODIUM
     Indication: ANTIPLATELET THERAPY
     Dosage: UNK
     Route: 065
  4. TICAGRELOR. [Suspect]
     Active Substance: TICAGRELOR
     Indication: ANTIPLATELET THERAPY
     Dosage: 180 MG, UNK
     Route: 065

REACTIONS (8)
  - Vascular rupture [Recovered/Resolved]
  - Capillary fragility increased [Recovered/Resolved]
  - Petechiae [Recovered/Resolved]
  - Haematoma [Recovered/Resolved]
  - Labelled drug-drug interaction medication error [Recovered/Resolved]
  - Capillary fragility test [Recovered/Resolved]
  - Pain in extremity [Recovered/Resolved]
  - Peripheral swelling [Recovered/Resolved]
